FAERS Safety Report 6401072-5 (Version None)
Quarter: 2009Q4

REPORT INFORMATION
  Report Type: 
  Country: None (occurrence: None)
  Receive Date: 20091009
  Receipt Date: 20091009
  Transmission Date: 20100525
  Serious: Yes (Life-Threatening)
  Sender: FDA-Public Use
  Company Number: None

PATIENT
  Sex: Male
  Weight: 88.4514 kg

DRUGS (1)
  1. CYMBALTA [Suspect]
     Indication: DEPRESSION
     Dosage: 1 30 MG DAILY
     Dates: start: 20090908, end: 20091008

REACTIONS (4)
  - AGGRESSION [None]
  - AMNESIA [None]
  - ANGER [None]
  - SUICIDAL IDEATION [None]
